FAERS Safety Report 8301862-8 (Version None)
Quarter: 2012Q2

REPORT INFORMATION
  Report Type: 
  Country: None (occurrence: None)
  Receive Date: 20120417
  Receipt Date: 20120406
  Transmission Date: 20120825
  Serious: Yes (Other)
  Sender: FDA-Public Use
  Company Number: JPI-P-020822

PATIENT
  Age: 60 Year
  Sex: Female

DRUGS (1)
  1. XYREM [Suspect]
     Indication: PRODUCT USED FOR UNKNOWN INDICATION
     Dosage: 6 GM (3 GM, 2 IN 1 D), ORAL, 9 GM (4.5 GM, 2 IN 1 D), ORAL
     Route: 048
     Dates: start: 20110726

REACTIONS (15)
  - BLOOD PRESSURE DECREASED [None]
  - DEPRESSION [None]
  - NAUSEA [None]
  - DECREASED APPETITE [None]
  - VISION BLURRED [None]
  - BLOOD PRESSURE INCREASED [None]
  - CATARACT OPERATION [None]
  - LOW DENSITY LIPOPROTEIN INCREASED [None]
  - BLOOD GLUCOSE INCREASED [None]
  - PARAESTHESIA [None]
  - SELF INJURIOUS BEHAVIOUR [None]
  - BLOOD PRESSURE SYSTOLIC INCREASED [None]
  - SLEEP DISORDER [None]
  - FATIGUE [None]
  - INSOMNIA [None]
